FAERS Safety Report 10530533 (Version 1)
Quarter: 2014Q4

REPORT INFORMATION
  Report Type: Spontaneous
  Country: US (occurrence: US)
  Receive Date: 20141021
  Receipt Date: 20141021
  Transmission Date: 20150528
  Serious: No
  Sender: FDA-Public Use
  Company Number: US-ASTRAZENECA-2014SE77285

PATIENT
  Sex: Male

DRUGS (1)
  1. CRESTOR [Suspect]
     Active Substance: ROSUVASTATIN CALCIUM
     Route: 048

REACTIONS (6)
  - Rash [Recovering/Resolving]
  - Swelling face [Unknown]
  - Blister [Unknown]
  - Myalgia [Unknown]
  - Diabetes mellitus [Not Recovered/Not Resolved]
  - Pain in extremity [Unknown]
